FAERS Safety Report 13423194 (Version 1)
Quarter: 2017Q2

REPORT INFORMATION
  Report Type: Spontaneous
  Country: US (occurrence: US)
  Receive Date: 20170410
  Receipt Date: 20170410
  Transmission Date: 20170830
  Serious: No
  Sender: FDA-Public Use
  Company Number: None

PATIENT
  Age: 71 Week
  Sex: Male
  Weight: 118.8 kg

DRUGS (12)
  1. RIVAROXABAN [Suspect]
     Active Substance: RIVAROXABAN
     Indication: THROMBOSIS PROPHYLAXIS
     Route: 048
     Dates: start: 20161213, end: 20170410
  2. EPIDERAL INJECTIONS [Concomitant]
  3. SUPPLEMENTS [Concomitant]
     Active Substance: UNSPECIFIED INGREDIENT
  4. FLUTICASONE NASAL SPRAY [Concomitant]
     Active Substance: FLUTICASONE
  5. CYANOCOBALAMIN. [Concomitant]
     Active Substance: CYANOCOBALAMIN
  6. CHOLECALCIFEROL [Concomitant]
     Active Substance: CHOLECALCIFEROL
  7. MULTIPLE VITAMIN [Concomitant]
     Active Substance: VITAMINS
  8. CALCIUM [Concomitant]
     Active Substance: CALCIUM
  9. TAMSULOSIN [Concomitant]
     Active Substance: TAMSULOSIN
  10. TESTOSTERONE. [Concomitant]
     Active Substance: TESTOSTERONE
  11. FENOFIBRATE. [Concomitant]
     Active Substance: FENOFIBRATE
  12. ACETAMINOPHEN. [Concomitant]
     Active Substance: ACETAMINOPHEN

REACTIONS (3)
  - Feeling abnormal [None]
  - Weight increased [None]
  - Waist circumference increased [None]

NARRATIVE: CASE EVENT DATE: 20170410
